FAERS Safety Report 6033091-5 (Version None)
Quarter: 2009Q1

REPORT INFORMATION
  Report Type: 
  Country: None (occurrence: None)
  Receive Date: 20090109
  Receipt Date: 20081229
  Transmission Date: 20090719
  Serious: Yes (Death, Other)
  Sender: FDA-Public Use
  Company Number: US-ROCHE-605617

PATIENT
  Age: 22 Year
  Sex: Female

DRUGS (6)
  1. DIAZEPAM [Suspect]
     Indication: DEPRESSION
     Dosage: OTHER INDICATION: INSOMNIA
     Route: 065
  2. COCAINE [Suspect]
     Indication: DRUG USE FOR UNKNOWN INDICATION
     Route: 065
  3. METHADONE HCL [Suspect]
     Indication: DRUG USE FOR UNKNOWN INDICATION
     Route: 065
  4. DEXTROMETHORPHAN HYDROBROMIDE [Suspect]
     Indication: DRUG USE FOR UNKNOWN INDICATION
     Route: 065
  5. ALPRAZOLAM [Suspect]
     Indication: DEPRESSION
     Route: 065
  6. FLUOXETINE [Suspect]
     Indication: DEPRESSION
     Route: 065

REACTIONS (2)
  - DRUG TOXICITY [None]
  - OVERDOSE [None]
